FAERS Safety Report 7361563-X (Version None)
Quarter: 2011Q1

REPORT INFORMATION
  Report Type: 
  Country: None (occurrence: None)
  Receive Date: 20110309
  Receipt Date: 20110228
  Transmission Date: 20110831
  Serious: Yes (Other)
  Sender: FDA-Public Use
  Company Number: VAL_00542_2011

PATIENT
  Sex: Female

DRUGS (1)
  1. ROCALTROL [Suspect]
     Indication: PRODUCT USED FOR UNKNOWN INDICATION
     Dosage: DF

REACTIONS (3)
  - CONDITION AGGRAVATED [None]
  - RENAL FAILURE [None]
  - HAEMODIALYSIS [None]
